FAERS Safety Report 21948653 (Version 1)
Quarter: 2023Q1

REPORT INFORMATION
  Report Type: Spontaneous
  Country: US (occurrence: None)
  Receive Date: 20230203
  Receipt Date: 20230203
  Transmission Date: 20230418
  Serious: No
  Sender: FDA-Public Use
  Company Number: 2023A021209

PATIENT
  Sex: Female

DRUGS (2)
  1. LYNPARZA [Suspect]
     Active Substance: OLAPARIB
     Indication: Mesenteric neoplasm
     Route: 048
  2. LYNPARZA [Suspect]
     Active Substance: OLAPARIB
     Indication: Mesenteric neoplasm
     Route: 048

REACTIONS (4)
  - Fatigue [Unknown]
  - Memory impairment [Unknown]
  - Suspected COVID-19 [Unknown]
  - Off label use [Unknown]
